FAERS Safety Report 7407756-4 (Version None)
Quarter: 2011Q2

REPORT INFORMATION
  Report Type: 
  Country: None (occurrence: None)
  Receive Date: 20110408
  Receipt Date: 20110408
  Transmission Date: 20111010
  Serious: Yes (Other)
  Sender: FDA-Public Use
  Company Number: None

PATIENT
  Age: 8 Month
  Sex: Male
  Weight: 8.8451 kg

DRUGS (3)
  1. LITTLE TEETHERS [Concomitant]
  2. HUMPHREYS TEETHING PELLETS [Concomitant]
  3. HUMPHREY'S TEETHING TABLETS [Suspect]
     Dosage: PO
     Route: 048

REACTIONS (4)
  - SOMNOLENCE [None]
  - TOXICITY TO VARIOUS AGENTS [None]
  - CONVULSION [None]
  - MUSCULAR WEAKNESS [None]
